FAERS Safety Report 8410166-4 (Version None)
Quarter: 2012Q2

REPORT INFORMATION
  Report Type: 
  Country: None (occurrence: None)
  Receive Date: 20120605
  Receipt Date: 20120529
  Transmission Date: 20120825
  Serious: Yes (Hospitalization)
  Sender: FDA-Public Use
  Company Number: PHEH2012US010957

PATIENT
  Sex: Male

DRUGS (2)
  1. EXJADE [Suspect]
     Indication: HAEMATOPOIETIC NEOPLASM
  2. EXJADE [Suspect]
     Indication: LYMPHATIC SYSTEM NEOPLASM
     Dosage: 1000 MG, QD
     Route: 048
     Dates: start: 20111003

REACTIONS (6)
  - PNEUMONIA [None]
  - ASTHENIA [None]
  - BLOOD BILIRUBIN INCREASED [None]
  - DYSPNOEA [None]
  - CHOLELITHIASIS [None]
  - PYREXIA [None]
